FAERS Safety Report 7506992-6 (Version None)
Quarter: 2011Q2

REPORT INFORMATION
  Report Type: 
  Country: None (occurrence: None)
  Receive Date: 20110526
  Receipt Date: 20110524
  Transmission Date: 20111010
  Serious: Yes (Hospitalization)
  Sender: FDA-Public Use
  Company Number: GXKR2010DE13936

PATIENT
  Age: 44 Year
  Sex: Female
  Weight: 60 kg

DRUGS (3)
  1. VENLAFAXINE [Suspect]
     Dosage: 4.5 G, UNK
     Route: 065
  2. DIAZEPAM [Suspect]
     Dosage: 200 MG, UNK
     Route: 065
  3. LAMOTRIGINE [Suspect]
     Dosage: 4.5 G, UNK
     Route: 065

REACTIONS (12)
  - GRAND MAL CONVULSION [None]
  - HYPERREFLEXIA [None]
  - BODY TEMPERATURE INCREASED [None]
  - SEROTONIN SYNDROME [None]
  - COMA SCALE ABNORMAL [None]
  - INTENTIONAL OVERDOSE [None]
  - UNRESPONSIVE TO STIMULI [None]
  - NUCHAL RIGIDITY [None]
  - MYOCLONUS [None]
  - BLOOD CREATINE PHOSPHOKINASE INCREASED [None]
  - DRUG LEVEL INCREASED [None]
  - LOSS OF CONSCIOUSNESS [None]
